FAERS Safety Report 17356486 (Version 1)
Quarter: 2020Q1

REPORT INFORMATION
  Report Type: Spontaneous
  Country: US (occurrence: US)
  Receive Date: 20200131
  Receipt Date: 20200131
  Transmission Date: 20200409
  Serious: Yes (Hospitalization, Other)
  Sender: FDA-Public Use
  Company Number: US-ASTRAZENECA-2020SE12672

PATIENT
  Age: 67 Year
  Sex: Female
  Weight: 78 kg

DRUGS (17)
  1. SYMBICORT [Suspect]
     Active Substance: BUDESONIDE\FORMOTEROL FUMARATE DIHYDRATE
     Dosage: UNKNOWN UNKNOWN
     Route: 055
     Dates: start: 1989
  2. ARICEPT [Concomitant]
     Active Substance: DONEPEZIL HYDROCHLORIDE
     Dates: start: 2018
  3. LYRICA [Concomitant]
     Active Substance: PREGABALIN
     Dates: start: 201911
  4. PROAIR HFA [Concomitant]
     Active Substance: ALBUTEROL SULFATE
     Dates: start: 2009
  5. AMRIX [Concomitant]
     Active Substance: CYCLOBENZAPRINE HYDROCHLORIDE
     Dates: start: 1997
  6. FENTYL [Concomitant]
     Active Substance: FENTANYL
     Dates: start: 1989
  7. PROZAC [Concomitant]
     Active Substance: FLUOXETINE HYDROCHLORIDE
     Dates: start: 2014
  8. VALTREX [Concomitant]
     Active Substance: VALACYCLOVIR HYDROCHLORIDE
     Dates: start: 20190816
  9. METFORMIN [Concomitant]
     Active Substance: METFORMIN HYDROCHLORIDE
     Dates: start: 2009
  10. PREVACID [Concomitant]
     Active Substance: LANSOPRAZOLE
     Dates: start: 1999
  11. HYDROCODONE [Concomitant]
     Active Substance: HYDROCODONE
     Dates: start: 1989
  12. LOSARTAN AND HYDROCHLOROTHIAZIDE [Concomitant]
     Active Substance: HYDROCHLOROTHIAZIDE\LOSARTAN POTASSIUM
     Dates: start: 2004
  13. VITAMIN B12 [Concomitant]
     Active Substance: CYANOCOBALAMIN
     Dates: start: 2014
  14. ONZETRA [Concomitant]
     Active Substance: SUMATRIPTAN SUCCINATE
     Dates: start: 2014
  15. TRULICITY [Concomitant]
     Active Substance: DULAGLUTIDE
     Dates: start: 2014
  16. WELLBUTRIN [Concomitant]
     Active Substance: BUPROPION HYDROCHLORIDE
     Dates: start: 2014
  17. ZETIA [Concomitant]
     Active Substance: EZETIMIBE
     Dates: start: 1999

REACTIONS (25)
  - Intervertebral disc degeneration [Unknown]
  - Bronchitis chronic [Unknown]
  - Factor V Leiden mutation [Unknown]
  - Hypertension [Unknown]
  - Gastrooesophageal reflux disease [Unknown]
  - Chronic obstructive pulmonary disease [Unknown]
  - Depression [Unknown]
  - Fall [Unknown]
  - Ankle fracture [Recovered/Resolved]
  - Osteoarthritis [Unknown]
  - Fibromyalgia [Unknown]
  - Tremor [Unknown]
  - Neck pain [Unknown]
  - Hyperlipidaemia [Unknown]
  - Diverticulum [Unknown]
  - Sleep apnoea syndrome [Unknown]
  - Urinary tract infection [Unknown]
  - Drug hypersensitivity [Unknown]
  - Migraine [Unknown]
  - Anxiety [Unknown]
  - Chronic kidney disease [Unknown]
  - Asthma [Unknown]
  - Oral herpes [Unknown]
  - Carpal tunnel syndrome [Unknown]
  - Tinnitus [Unknown]

NARRATIVE: CASE EVENT DATE: 1989
